FAERS Safety Report 23162794 (Version 9)
Quarter: 2025Q2

REPORT INFORMATION
  Report Type: Report from Study
  Country: US (occurrence: US)
  Receive Date: 20231109
  Receipt Date: 20250619
  Transmission Date: 20250717
  Serious: Yes (Other)
  Sender: TAKEDA
  Company Number: US-TAKEDA-US201941651

PATIENT
  Age: 15 Year
  Sex: Male
  Weight: 23.58 kg

DRUGS (4)
  1. ADVATE [Suspect]
     Active Substance: ANTIHEMOPHILIC FACTOR, HUMAN RECOMBINANT
     Indication: Haemorrhage
  2. ADVATE [Suspect]
     Active Substance: ANTIHEMOPHILIC FACTOR, HUMAN RECOMBINANT
  3. ADVATE [Suspect]
     Active Substance: ANTIHEMOPHILIC FACTOR, HUMAN RECOMBINANT
  4. ADVATE [Suspect]
     Active Substance: ANTIHEMOPHILIC FACTOR, HUMAN RECOMBINANT

REACTIONS (15)
  - Haemarthrosis [Recovered/Resolved]
  - Contusion [Unknown]
  - Muscle haemorrhage [Unknown]
  - Haemorrhage [Recovered/Resolved]
  - Multiple allergies [Unknown]
  - Fall [Unknown]
  - Joint injury [Unknown]
  - Rash papular [Unknown]
  - Bronchitis [Recovering/Resolving]
  - Viral infection [Unknown]
  - Pain [Unknown]
  - Joint swelling [Unknown]
  - Arthralgia [Not Recovered/Not Resolved]
  - Nasopharyngitis [Unknown]
  - Limb injury [Unknown]

NARRATIVE: CASE EVENT DATE: 20230412
